FAERS Safety Report 13574101 (Version 1)
Quarter: 2017Q2

REPORT INFORMATION
  Report Type: Other
  Country: FR (occurrence: FR)
  Receive Date: 20170523
  Receipt Date: 20170523
  Transmission Date: 20170830
  Serious: Yes (Other)
  Sender: FDA-Public Use
  Company Number: FR-ASTELLAS-2017US019800

PATIENT
  Age: 73 Year
  Sex: Female

DRUGS (17)
  1. CELLCEPT [Suspect]
     Active Substance: MYCOPHENOLATE MOFETIL\MYCOPHENOLATE MOFETIL HYDROCHLORIDE
     Route: 048
     Dates: start: 20170118
  2. CELLCEPT [Suspect]
     Active Substance: MYCOPHENOLATE MOFETIL\MYCOPHENOLATE MOFETIL HYDROCHLORIDE
     Route: 048
     Dates: start: 20170126
  3. BISOPROLOL HEMIFUMARATE [Concomitant]
     Active Substance: BISOPROLOL FUMARATE
     Indication: PRODUCT USED FOR UNKNOWN INDICATION
     Dosage: 1.25 MG, ONCE DAILY (1-0-0)
     Route: 048
  4. UVEDOSE [Concomitant]
     Active Substance: CHOLECALCIFEROL
     Indication: PRODUCT USED FOR UNKNOWN INDICATION
     Dosage: 100000 IU,EVERY 2 MONTHS (0.0167 DF DAILY)
     Route: 048
  5. CELLCEPT [Suspect]
     Active Substance: MYCOPHENOLATE MOFETIL\MYCOPHENOLATE MOFETIL HYDROCHLORIDE
     Dosage: 250 MG, TWICE DAILY (IN THE MORNING AND AT NIGHT)
     Route: 048
     Dates: start: 20170425
  6. MIMPARA [Concomitant]
     Active Substance: CINACALCET HYDROCHLORIDE
     Indication: PRODUCT USED FOR UNKNOWN INDICATION
     Dosage: 60 MG, ONCE DAILY (1-0-0)
     Route: 048
  7. CELLCEPT [Suspect]
     Active Substance: MYCOPHENOLATE MOFETIL\MYCOPHENOLATE MOFETIL HYDROCHLORIDE
     Indication: PROPHYLAXIS AGAINST TRANSPLANT REJECTION
     Route: 048
     Dates: start: 201611
  8. ADVAGRAF [Suspect]
     Active Substance: TACROLIMUS
     Route: 065
     Dates: start: 20170323
  9. KARDEGIC [Concomitant]
     Active Substance: ASPIRIN LYSINE
     Indication: PRODUCT USED FOR UNKNOWN INDICATION
     Dosage: 75 MG, ONCE DAILY (1-0-0)
     Route: 048
  10. ADVAGRAF [Suspect]
     Active Substance: TACROLIMUS
     Indication: PROPHYLAXIS AGAINST TRANSPLANT REJECTION
     Route: 048
     Dates: start: 201611
  11. ADVAGRAF [Suspect]
     Active Substance: TACROLIMUS
     Route: 065
     Dates: start: 20170216
  12. AMLODIPIN                          /00972401/ [Concomitant]
     Active Substance: AMLODIPINE BESYLATE
     Indication: PRODUCT USED FOR UNKNOWN INDICATION
     Dosage: 5 MG, ONCE DAILY (0-0-1)
     Route: 048
  13. ADVAGRAF [Suspect]
     Active Substance: TACROLIMUS
     Route: 065
     Dates: start: 20170118
  14. CELLCEPT [Suspect]
     Active Substance: MYCOPHENOLATE MOFETIL\MYCOPHENOLATE MOFETIL HYDROCHLORIDE
     Route: 048
     Dates: start: 20170323, end: 20170406
  15. SOLUPRED                           /00016217/ [Concomitant]
     Active Substance: PREDNISOLONE
     Indication: PROPHYLAXIS AGAINST TRANSPLANT REJECTION
     Dosage: 5 MG, ONCE DAILY (1-0-0)
     Route: 048
  16. BACTRIM [Concomitant]
     Active Substance: SULFAMETHOXAZOLE\TRIMETHOPRIM
     Indication: PROPHYLAXIS
     Dosage: 400 MG, ONCE DAILY (1-0-0)
     Route: 048
     Dates: start: 20160525, end: 20160525
  17. PRAVASTATIN SODIUM. [Concomitant]
     Active Substance: PRAVASTATIN SODIUM
     Indication: PRODUCT USED FOR UNKNOWN INDICATION
     Dosage: 20 MG, ONCE DAILY (0-0-1)
     Route: 048

REACTIONS (3)
  - Neutropenia [Recovered/Resolved]
  - Polyomavirus-associated nephropathy [Unknown]
  - Lymphopenia [Recovered/Resolved]

NARRATIVE: CASE EVENT DATE: 201702
